FAERS Safety Report 5066556-3 (Version None)
Quarter: 2006Q3

REPORT INFORMATION
  Report Type: 
  Country: None (occurrence: None)
  Receive Date: 20060801
  Receipt Date: 20060509
  Transmission Date: 20061208
  Serious: Yes (Hospitalization, Other)
  Sender: FDA-Public Use
  Company Number: GB-ABBOTT-06P-167-0332898-00

PATIENT
  Sex: Male
  Weight: 55 kg

DRUGS (5)
  1. RITONAVIR SOFT GELATIN CAPSULES [Suspect]
     Indication: HIV INFECTION
     Dates: start: 20050913
  2. APTIVUS [Suspect]
     Indication: HIV INFECTION
     Dates: start: 20050913
  3. DIDANOSINE [Concomitant]
     Indication: DRUG USE FOR UNKNOWN INDICATION
  4. ENFUVIRTIDE [Concomitant]
     Indication: DRUG USE FOR UNKNOWN INDICATION
  5. TENOFOVIR [Concomitant]
     Indication: DRUG USE FOR UNKNOWN INDICATION

REACTIONS (5)
  - CD4 LYMPHOCYTES INCREASED [None]
  - EOSINOPHILIA [None]
  - HEPATIC FUNCTION ABNORMAL [None]
  - HEPATITIS [None]
  - VIRAL LOAD DECREASED [None]
